FAERS Safety Report 13265884 (Version 1)
Quarter: 2017Q1

REPORT INFORMATION
  Report Type: Report from Study
  Country: US (occurrence: US)
  Receive Date: 20170223
  Receipt Date: 20170223
  Transmission Date: 20170428
  Serious: Yes (Hospitalization)
  Sender: FDA-Public Use
  Company Number: PHHO2012US014391

PATIENT
  Age: 61 Year
  Sex: Female
  Weight: 76 kg

DRUGS (2)
  1. AFINITOR [Suspect]
     Active Substance: EVEROLIMUS
     Indication: OVARIAN EPITHELIAL CANCER
     Dosage: 10 MG, QD
     Route: 048
     Dates: start: 20120808, end: 20120929
  2. BEVACIZUMAB [Suspect]
     Active Substance: BEVACIZUMAB
     Indication: OVARIAN EPITHELIAL CANCER
     Dosage: 10 MG/KG, DAY 1 AND 15
     Route: 042
     Dates: start: 20120808

REACTIONS (1)
  - Small intestinal obstruction [Recovering/Resolving]

NARRATIVE: CASE EVENT DATE: 20120926
